FAERS Safety Report 16878913 (Version 9)
Quarter: 2020Q2

REPORT INFORMATION
  Report Type: Report from Study
  Country: JP (occurrence: JP)
  Receive Date: 20191002
  Receipt Date: 20200515
  Transmission Date: 20200713
  Serious: Yes (Death, Hospitalization, Other)
  Sender: FDA-Public Use
  Company Number: JP-TAKEDA-2019TJP017669AA

PATIENT
  Age: 43 Year
  Sex: Male
  Weight: 70.3 kg

DRUGS (25)
  1. URSODEOXYCHOLIC ACID [Concomitant]
     Active Substance: URSODIOL
     Indication: PROPHYLAXIS
     Dosage: 200 MILLIGRAM, TID
     Route: 048
     Dates: start: 20190712, end: 20190814
  2. ELNEOPA NO.1 [Concomitant]
     Active Substance: AMINO ACIDS\DEXTROSE\ELECTROLYTES NOS\MINERALS\VITAMINS
     Indication: FLUID REPLACEMENT
     Dosage: 1500 MILLILITER, QD
     Route: 042
     Dates: start: 20190724, end: 20190724
  3. ELNEOPA NO.1 [Concomitant]
     Active Substance: AMINO ACIDS\DEXTROSE\ELECTROLYTES NOS\MINERALS\VITAMINS
     Dosage: 1000 MILLILITER, QD
     Route: 042
     Dates: start: 20190725, end: 20190804
  4. HYDROCORTISONE SODIUM SUCCINATE [Concomitant]
     Active Substance: HYDROCORTISONE SODIUM SUCCINATE
     Indication: ALLERGY PROPHYLAXIS
     Dosage: 100 MILLIGRAM
     Route: 042
     Dates: start: 20190727, end: 20200101
  5. HYALURONATE SODIUM [Concomitant]
     Active Substance: HYALURONATE SODIUM
     Indication: PROPHYLAXIS
     Dosage: 1 GTT DROPS
     Route: 047
     Dates: start: 20191115, end: 20200101
  6. TACROLIMUS. [Suspect]
     Active Substance: TACROLIMUS
     Indication: PROPHYLAXIS AGAINST GRAFT VERSUS HOST DISEASE
     Dosage: UNK
     Route: 042
     Dates: start: 20190619, end: 20191006
  7. URSODEOXYCHOLIC ACID [Concomitant]
     Active Substance: URSODIOL
     Dosage: 100 MILLIGRAM, TID
     Route: 048
     Dates: start: 20190815, end: 20191009
  8. MAGNESIUM SULFATE. [Concomitant]
     Active Substance: MAGNESIUM SULFATE
     Indication: ELECTROLYTE SUBSTITUTION THERAPY
     Dosage: 10 MILLIEQUIVALENT, QD
     Route: 042
     Dates: start: 20190722, end: 20190820
  9. MICAFUNGIN SODIUM [Concomitant]
     Active Substance: MICAFUNGIN SODIUM
     Indication: PROPHYLAXIS
     Dosage: 50 MILLIGRAM, QD
     Route: 042
     Dates: start: 20190715, end: 20190724
  10. LEVOFLOXACIN HEMIHYDRATE [Concomitant]
     Active Substance: LEVOFLOXACIN
     Indication: INFECTION PROPHYLAXIS
     Dosage: 500 MILLIGRAM, QD
     Route: 048
     Dates: start: 20190720, end: 20190724
  11. SOLDEM 1 [Concomitant]
     Active Substance: DEXTROSE\SODIUM CHLORIDE\SODIUM LACTATE
     Dosage: 2000 MILLILITER, QD
     Route: 042
     Dates: start: 20190730, end: 20190914
  12. SODIUM CHLORIDE. [Concomitant]
     Active Substance: SODIUM CHLORIDE
     Indication: STOMATITIS
     Dosage: 4.5 GRAM
     Route: 002
     Dates: start: 20191111, end: 20200101
  13. VEDOLIZUMAB [Suspect]
     Active Substance: VEDOLIZUMAB
     Indication: PROPHYLAXIS AGAINST GRAFT VERSUS HOST DISEASE
     Dosage: UNK
     Route: 042
     Dates: start: 20190619, end: 20190619
  14. TACROLIMUS. [Suspect]
     Active Substance: TACROLIMUS
     Dosage: UNK
     Route: 048
     Dates: start: 20191007
  15. SOLDEM 1 [Concomitant]
     Active Substance: DEXTROSE\SODIUM CHLORIDE\SODIUM LACTATE
     Indication: FLUID REPLACEMENT
     Dosage: 500 MILLILITER, QD
     Route: 042
     Dates: start: 20190723, end: 20190724
  16. ANTI-HUMAN THYMOCYTE IMMUNOGLOBULIN,RABBIT [Suspect]
     Active Substance: LAPINE T-LYMPHOCYTE IMMUNE GLOBULIN
     Indication: PROPHYLAXIS AGAINST GRAFT VERSUS HOST DISEASE
     Dosage: UNK
     Route: 042
     Dates: start: 20190618, end: 20190618
  17. LANSOPRAZOLE. [Concomitant]
     Active Substance: LANSOPRAZOLE
     Indication: GASTRITIS PROPHYLAXIS
     Dosage: 15 MILLIGRAM, QD
     Route: 048
     Dates: start: 20190715, end: 20200101
  18. SOLDEM 1 [Concomitant]
     Active Substance: DEXTROSE\SODIUM CHLORIDE\SODIUM LACTATE
     Dosage: 500 MILLILITER, QD
     Route: 042
     Dates: start: 20191112, end: 20191121
  19. SOLDEM 3A [Concomitant]
     Active Substance: CARBOHYDRATES\POTASSIUM CHLORIDE\SODIUM CHLORIDE\SODIUM LACTATE
     Indication: FLUID REPLACEMENT
     Dosage: 500 MILLILITER, QD
     Route: 042
     Dates: start: 20191112, end: 20191121
  20. VEDOLIZUMAB [Suspect]
     Active Substance: VEDOLIZUMAB
     Dosage: UNK
     Route: 042
     Dates: start: 20190703, end: 20190703
  21. VEDOLIZUMAB [Suspect]
     Active Substance: VEDOLIZUMAB
     Dosage: UNK
     Route: 042
     Dates: start: 20190927, end: 20190927
  22. VEDOLIZUMAB [Suspect]
     Active Substance: VEDOLIZUMAB
     Dosage: UNK
     Route: 042
     Dates: start: 20191023, end: 20191023
  23. INSULIN HUMAN [Concomitant]
     Active Substance: INSULIN HUMAN
     Indication: INFECTION PROPHYLAXIS
     Dosage: UNK UNK, QD
     Route: 042
     Dates: start: 20190724, end: 20190724
  24. METHOTREXATE. [Suspect]
     Active Substance: METHOTREXATE
     Indication: PROPHYLAXIS AGAINST GRAFT VERSUS HOST DISEASE
     Dosage: UNK
     Route: 042
     Dates: start: 20190621, end: 20190626
  25. ACICLOVIR [Concomitant]
     Active Substance: ACYCLOVIR
     Indication: INFECTION PROPHYLAXIS
     Dosage: 200 MILLIGRAM, QD
     Route: 048
     Dates: start: 20190723, end: 20200101

REACTIONS (4)
  - Acute graft versus host disease in liver [Fatal]
  - Acute graft versus host disease in intestine [Not Recovered/Not Resolved]
  - Bronchopulmonary aspergillosis [Recovering/Resolving]
  - Acute graft versus host disease in liver [Recovered/Resolved]

NARRATIVE: CASE EVENT DATE: 20190724
